FAERS Safety Report 20016096 (Version 1)
Quarter: 2021Q4

REPORT INFORMATION
  Report Type: Spontaneous
  Country: US (occurrence: None)
  Receive Date: 20211102
  Receipt Date: 20211102
  Transmission Date: 20220303
  Serious: Yes (Hospitalization)
  Sender: FDA-Public Use
  Company Number: None

PATIENT
  Sex: Male
  Weight: 131.2 kg

DRUGS (7)
  1. CYCLOPHOSPHAMIDE [Suspect]
     Active Substance: CYCLOPHOSPHAMIDE
     Dates: end: 20210924
  2. CYTARABINE [Concomitant]
     Active Substance: CYTARABINE
     Dates: end: 20210924
  3. DEXAMETHASONE [Concomitant]
     Active Substance: DEXAMETHASONE
     Dates: end: 20211009
  4. DOXORUBICIN HYDROCHLORIDE [Concomitant]
     Active Substance: DOXORUBICIN HYDROCHLORIDE
     Dates: end: 20210910
  5. RITUXIMAB [Concomitant]
     Active Substance: RITUXIMAB
     Dates: end: 20210910
  6. THIOGUANINE ANHYDROUS [Concomitant]
     Active Substance: THIOGUANINE ANHYDROUS
     Dates: end: 20211007
  7. VINCRISTINE SULFATE [Concomitant]
     Active Substance: VINCRISTINE SULFATE
     Dates: end: 20211015

REACTIONS (5)
  - Pyrexia [None]
  - Confusional state [None]
  - Bacteraemia [None]
  - Blood culture positive [None]
  - Proteus test positive [None]

NARRATIVE: CASE EVENT DATE: 20211025
